FAERS Safety Report 17002223 (Version 3)
Quarter: 2019Q4

REPORT INFORMATION
  Report Type: Report from Study
  Country: JP (occurrence: JP)
  Receive Date: 20191106
  Receipt Date: 20191226
  Transmission Date: 20200122
  Serious: Yes (Hospitalization, Other)
  Sender: FDA-Public Use
  Company Number: JP-BRISTOL-MYERS SQUIBB COMPANY-BMS-2019-104334

PATIENT
  Age: 50 Year
  Sex: Female
  Weight: 36.9 kg

DRUGS (27)
  1. NIVOLUMAB [Suspect]
     Active Substance: NIVOLUMAB
     Indication: COLON CANCER
     Dosage: 3 MILLIGRAM/KILOGRAM, Q2WK
     Route: 041
     Dates: start: 20190813
  2. ONON [Concomitant]
     Active Substance: PRANLUKAST
     Indication: SEASONAL ALLERGY
     Dosage: 225 MILLIGRAM, Q12H
     Route: 048
  3. EVISTA [Concomitant]
     Active Substance: RALOXIFENE HYDROCHLORIDE
     Indication: OSTEOPOROSIS
     Dosage: 60 MILLIGRAM, QD
     Route: 048
     Dates: start: 20190821
  4. EBRANTIL [URAPIDIL] [Concomitant]
     Active Substance: URAPIDIL
     Indication: HYPERTENSION
     Dosage: 30 MILLIGRAM, Q12H
     Route: 048
  5. ABILIFY [Concomitant]
     Active Substance: ARIPIPRAZOLE
     Indication: MENTAL DISORDER
     Dosage: 2 DOSAGE FORM, QD
     Route: 048
  6. CALONAL [Concomitant]
     Active Substance: ACETAMINOPHEN
     Indication: PYREXIA
     Route: 065
  7. OLANZAPINE. [Concomitant]
     Active Substance: OLANZAPINE
     Indication: NAUSEA
     Dosage: 5 MILLIGRAM, PRN
     Route: 048
     Dates: start: 20190813
  8. EDIROL [Concomitant]
     Active Substance: ELDECALCITOL
     Indication: OSTEOPOROSIS
     Dosage: 0.75 MICROGRAM, QD
     Route: 048
  9. ALLELOCK [Concomitant]
     Active Substance: OLOPATADINE HYDROCHLORIDE
     Indication: SEASONAL ALLERGY
     Dosage: 5 MILLIGRAM, Q12H
     Route: 048
  10. NARUSUS [Concomitant]
     Active Substance: HYDROMORPHONE HYDROCHLORIDE
     Indication: TUMOUR PAIN
     Dosage: 6 MILLIGRAM, QD
     Route: 048
  11. EXCEGRAN [Concomitant]
     Active Substance: ZONISAMIDE
     Indication: PROPHYLAXIS
     Dosage: 150 MILLIGRAM, Q12H
     Route: 048
  12. ALFACALCIDOL [Concomitant]
     Active Substance: ALFACALCIDOL
     Indication: OSTEOPOROSIS
     Dosage: 1 MICROGRAM, QD
     Route: 048
     Dates: start: 20190919
  13. TAS 116 [Suspect]
     Active Substance: PIMITESPIB
     Indication: PRODUCT USED FOR UNKNOWN INDICATION
     Dosage: 120 MILLIGRAM, PER DAY
     Route: 065
     Dates: start: 20190819
  14. TAS 116 [Suspect]
     Active Substance: PIMITESPIB
     Indication: PRODUCT USED FOR UNKNOWN INDICATION
     Dosage: 80 MILLIGRAM, PER DAY
     Route: 065
     Dates: start: 20190826
  15. TAKECAB [Concomitant]
     Active Substance: VONOPRAZAN FUMURATE
     Indication: GASTRITIS PROPHYLAXIS
     Dosage: 10 MILLIGRAM, QD
     Route: 048
  16. AZUNOL [GUAIAZULENE] [Concomitant]
     Active Substance: GUAIAZULENE
     Indication: SKIN DISORDER
     Dosage: UNK APPLIED ADEQUATE DOSE AS NEEDED
     Route: 061
     Dates: start: 20190928
  17. TAS 116 [Suspect]
     Active Substance: PIMITESPIB
     Indication: COLON CANCER
     Dosage: 160 MILLIGRAM, PER DAY
     Route: 065
     Dates: start: 20190813
  18. PYDOXAL [Concomitant]
     Active Substance: PYRIDOXAL
     Indication: VITAMIN SUPPLEMENTATION
     Dosage: 20 MILLIGRAM, Q8H
     Route: 048
  19. DEPAKENE [VALPROATE SODIUM] [Concomitant]
     Active Substance: VALPROATE SODIUM
     Indication: PROPHYLAXIS
     Dosage: 500 MILLIGRAM, Q12H
     Route: 048
  20. HIRUDOID [Concomitant]
     Active Substance: GLYCOSAMINOGLYCANS
     Indication: SKIN DISORDER
     Dosage: UNKAPPLIED ADEQUATE DOSE AS NEEDED
     Route: 061
  21. CALONAL [Concomitant]
     Active Substance: ACETAMINOPHEN
     Indication: ARTHRALGIA
     Dosage: 400 MILLIGRAM, PRN
     Route: 048
     Dates: start: 20190816
  22. AMOBAN [Concomitant]
     Active Substance: ZOPICLONE
     Indication: INSOMNIA
     Dosage: 10 MILLIGRAM, QD
     Route: 048
     Dates: start: 20190819
  23. CARBOCISTEINE [Concomitant]
     Active Substance: CARBOCYSTEINE
     Indication: PROPHYLAXIS
     Dosage: 500 MILLIGRAM, Q8H
     Route: 048
  24. ZOMIG [Concomitant]
     Active Substance: ZOLMITRIPTAN
     Indication: MIGRAINE PROPHYLAXIS
     Dosage: 2.5 MILLIGRAM, PRN
     Route: 048
  25. SEROQUEL [Concomitant]
     Active Substance: QUETIAPINE FUMARATE
     Indication: PROPHYLAXIS
     Dosage: 75 MILLIGRAM, Q8H
     Route: 048
  26. MYSER [DIFLUPREDNATE] [Concomitant]
     Indication: SKIN DISORDER
     Dosage: UNK (APPLIED ADEQUATE DOSE AS NEEDED)
     Route: 061
     Dates: start: 20190902
  27. NARURAPID [Concomitant]
     Active Substance: HYDROMORPHONE HYDROCHLORIDE
     Indication: TUMOUR PAIN
     Dosage: 2 MILLIGRAM, PRN
     Route: 048
     Dates: start: 20190919

REACTIONS (1)
  - Enterocolitis [Not Recovered/Not Resolved]

NARRATIVE: CASE EVENT DATE: 20191028
